FAERS Safety Report 10255997 (Version 1)
Quarter: 2014Q2

REPORT INFORMATION
  Report Type: Spontaneous
  Country: CA (occurrence: CA)
  Receive Date: 20140624
  Receipt Date: 20140624
  Transmission Date: 20141212
  Serious: Yes (Other)
  Sender: FDA-Public Use
  Company Number: CA-PFIZER INC-2014167250

PATIENT
  Age: 66 Year
  Sex: Male

DRUGS (11)
  1. ATORVASTATIN CALCIUM [Suspect]
     Dosage: 20 MG, 1X/DAY
  2. CITALOPRAM [Suspect]
     Dosage: 40 MG, 1X/DAY,
  3. QUETIAPINE FUMARATE [Suspect]
     Dosage: UNK
  4. EZETROL [Suspect]
     Dosage: 10 MG, 1X/DAY,
  5. PMS-CLONAZEPAM [Suspect]
     Dosage: 4 MG, 1X/DAY
  6. RAN-PANTOPRAZOLE [Suspect]
     Dosage: 10 MG, 1X/DAY
  7. TRAZODONE [Suspect]
     Dosage: 100 MG, 1X/DAY
  8. WELLBUTRIN XL [Suspect]
     Dosage: 150 MG, 1X/DAY
  9. NAPROXEN [Concomitant]
     Dosage: UNK
  10. ONE-A-DAY MEN 50 PLUS [Concomitant]
     Dosage: UNK
  11. QUETIAPINE/TEVA [Concomitant]
     Dosage: UNK

REACTIONS (8)
  - Balance disorder [Not Recovered/Not Resolved]
  - Bursitis [Not Recovered/Not Resolved]
  - Dizziness [Not Recovered/Not Resolved]
  - Fall [Not Recovered/Not Resolved]
  - Head discomfort [Not Recovered/Not Resolved]
  - Loss of consciousness [Not Recovered/Not Resolved]
  - Pain [Not Recovered/Not Resolved]
  - Pain in extremity [Not Recovered/Not Resolved]
